FAERS Safety Report 5667322-8 (Version None)
Quarter: 2008Q1

REPORT INFORMATION
  Report Type: 
  Country: None (occurrence: None)
  Receive Date: 20080315
  Receipt Date: 20080118
  Transmission Date: 20080703
  Serious: No
  Sender: FDA-Public Use
  Company Number: US-ABBOTT-08P-163-0434375-00

PATIENT
  Sex: Female
  Weight: 72.64 kg

DRUGS (11)
  1. HUMIRA [Suspect]
     Indication: CROHN'S DISEASE
     Route: 058
     Dates: start: 20080116, end: 20080116
  2. HUMIRA [Suspect]
     Route: 058
     Dates: start: 20080114, end: 20080114
  3. HUMIRA [Suspect]
     Route: 058
  4. HUMIRA [Suspect]
     Route: 058
  5. RABEPRAZOLE SODIUM [Concomitant]
     Indication: CROHN'S DISEASE
     Route: 048
  6. SUMATRIPTAN SUCCINATE [Concomitant]
     Indication: MIGRAINE
     Route: 048
  7. MESALAMINE [Concomitant]
     Indication: CROHN'S DISEASE
     Route: 048
  8. PROCHLORPERAZINE EDISYLATE [Concomitant]
     Indication: NAUSEA
  9. IRON [Concomitant]
     Indication: MINERAL SUPPLEMENTATION
     Route: 048
  10. BIRTH CONTROL [Concomitant]
     Indication: CONTRACEPTION
     Route: 048
  11. M.V.I. [Concomitant]
     Indication: VITAMIN SUPPLEMENTATION
     Route: 048

REACTIONS (1)
  - INFLUENZA [None]
